FAERS Safety Report 9490837 (Version 1)
Quarter: 2013Q3

REPORT INFORMATION
  Report Type: Spontaneous
  Country: AT (occurrence: AT)
  Receive Date: 20130830
  Receipt Date: 20130830
  Transmission Date: 20140515
  Serious: Yes (Life-Threatening, Hospitalization, Other)
  Sender: FDA-Public Use
  Company Number: AT-JNJFOC-20130800882

PATIENT
  Age: 78 Year
  Sex: Male
  Weight: 43 kg

DRUGS (3)
  1. HALDOL [Suspect]
     Indication: PRODUCT USED FOR UNKNOWN INDICATION
     Route: 042
     Dates: start: 20130428, end: 20130428
  2. MADOPAR [Concomitant]
     Route: 048
     Dates: start: 1990
  3. EXELON [Concomitant]
     Dosage: TRANSDERMAL PATCH, 4,6 MG/24H
     Route: 062
     Dates: start: 2010

REACTIONS (8)
  - Parkinsonism [Not Recovered/Not Resolved]
  - Cognitive disorder [Not Recovered/Not Resolved]
  - Dementia [Not Recovered/Not Resolved]
  - Somnolence [Not Recovered/Not Resolved]
  - Extrapyramidal disorder [Not Recovered/Not Resolved]
  - Altered state of consciousness [Not Recovered/Not Resolved]
  - General physical health deterioration [Not Recovered/Not Resolved]
  - Medication error [Unknown]
